FAERS Safety Report 9265910 (Version 2)
Quarter: 2013Q2

REPORT INFORMATION
  Report Type: Report from Study
  Country: US (occurrence: US)
  Receive Date: 20130501
  Receipt Date: 20130620
  Transmission Date: 20140414
  Serious: Yes (Other)
  Sender: FDA-Public Use
  Company Number: US-US-EMD SERONO, INC.-7207787

PATIENT
  Age: 54 Year
  Sex: Female
  Weight: 68 kg

DRUGS (2)
  1. REBIF [Suspect]
     Indication: MULTIPLE SCLEROSIS
     Route: 058
     Dates: start: 20111202
  2. METHOTREXATE [Concomitant]
     Indication: POLYCHONDRITIS

REACTIONS (3)
  - Staphylococcal infection [Not Recovered/Not Resolved]
  - Cerebrovascular accident [Unknown]
  - Injection site bruising [Unknown]
